FAERS Safety Report 7190859-X (Version None)
Quarter: 2010Q4

REPORT INFORMATION
  Report Type: 
  Country: None (occurrence: None)
  Receive Date: 20101222
  Receipt Date: 20101222
  Transmission Date: 20110411
  Serious: Yes (Hospitalization)
  Sender: FDA-Public Use
  Company Number: None

PATIENT
  Age: 68 Year
  Sex: Female
  Weight: 61.5 kg

DRUGS (9)
  1. OFATUMUMAB [Suspect]
     Dosage: 300MG WEEKLY IV
     Route: 042
     Dates: start: 20100910, end: 20100910
  2. KLONOPIN [Concomitant]
  3. DIGOXIN [Concomitant]
  4. LOVENOX [Concomitant]
  5. FENTANYL [Concomitant]
  6. LYRICA [Concomitant]
  7. SENOKOT [Concomitant]
  8. METOPROLOL [Concomitant]
  9. PYRIDOXINE HCL [Concomitant]

REACTIONS (1)
  - DIARRHOEA [None]
